FAERS Safety Report 5982877-1 (Version None)
Quarter: 2008Q4

REPORT INFORMATION
  Report Type: 
  Country: None (occurrence: None)
  Receive Date: 20081205
  Receipt Date: 20081205
  Transmission Date: 20090506
  Serious: Yes (Hospitalization)
  Sender: FDA-Public Use
  Company Number: None

PATIENT
  Age: 55 Year
  Sex: Female
  Weight: 69.8539 kg

DRUGS (1)
  1. ABILIFY [Suspect]
     Indication: BIPOLAR I DISORDER
     Dosage: 5 MG A.M. AND P.M. PO
     Route: 048
     Dates: start: 20081103, end: 20081201

REACTIONS (2)
  - ABNORMAL BEHAVIOUR [None]
  - PHOTOPHOBIA [None]
